FAERS Safety Report 18883310 (Version 1)
Quarter: 2021Q1

REPORT INFORMATION
  Report Type: Spontaneous
  Country: US (occurrence: US)
  Receive Date: 20210211
  Receipt Date: 20210211
  Transmission Date: 20210420
  Serious: No
  Sender: FDA-Public Use
  Company Number: US-PERRIGO-20US010473

PATIENT
  Age: 87 Year
  Sex: Female
  Weight: 52.61 kg

DRUGS (3)
  1. DOXEPIN [Concomitant]
     Active Substance: DOXEPIN
     Indication: URTICARIA
     Dosage: UNK
     Route: 065
     Dates: start: 2020
  2. SINGULAIR [Concomitant]
     Active Substance: MONTELUKAST SODIUM
     Indication: URTICARIA
     Dosage: UNK
     Route: 065
     Dates: start: 20200702
  3. CETIRIZINE HYDROCHLORIDE. [Suspect]
     Active Substance: CETIRIZINE HYDROCHLORIDE
     Indication: URTICARIA
     Dosage: 20 MG, BID
     Route: 048
     Dates: start: 20200618, end: 20200709

REACTIONS (3)
  - Product administered to patient of inappropriate age [Recovered/Resolved]
  - Drug ineffective for unapproved indication [Unknown]
  - Overdose [Recovered/Resolved]

NARRATIVE: CASE EVENT DATE: 20200618
